FAERS Safety Report 10722459 (Version 1)
Quarter: 2015Q1

REPORT INFORMATION
  Report Type: Spontaneous
  Country: US (occurrence: US)
  Receive Date: 20150119
  Receipt Date: 20150119
  Transmission Date: 20150721
  Serious: No
  Sender: FDA-Public Use
  Company Number: US-BAUSCH-BL-2014-008413

PATIENT
  Age: 70 Year
  Sex: Male

DRUGS (2)
  1. LOTEMAX [Suspect]
     Active Substance: LOTEPREDNOL ETABONATE
     Indication: IRITIS
     Dosage: 10-12 DROPS PER DAY
     Route: 047
  2. LOTEMAX [Suspect]
     Active Substance: LOTEPREDNOL ETABONATE
     Indication: IRITIS

REACTIONS (2)
  - Drug effect decreased [Not Recovered/Not Resolved]
  - Iritis [Not Recovered/Not Resolved]
